FAERS Safety Report 8780484 (Version 1)
Quarter: 2012Q4

REPORT INFORMATION
  Report Type: Spontaneous
  Country: US (occurrence: None)
  Receive Date: 20120906
  Receipt Date: 20120906
  Transmission Date: 20130627
  Serious: Yes (Hospitalization)
  Sender: FDA-Public Use
  Company Number: None

PATIENT
  Age: 46 Year
  Sex: Female
  Weight: 52.16 kg

DRUGS (1)
  1. CLARITHROMYCIN [Suspect]
     Indication: HELICOBACTER PYLORI INFECTION
     Dates: start: 20120828, end: 20120902

REACTIONS (9)
  - Abdominal pain [None]
  - Pain [None]
  - Mood altered [None]
  - Back pain [None]
  - Mental disorder [None]
  - Fatigue [None]
  - Illusion [None]
  - Crying [None]
  - Inappropriate affect [None]
